FAERS Safety Report 6530067-6 (Version None)
Quarter: 2010Q1

REPORT INFORMATION
  Report Type: 
  Country: None (occurrence: None)
  Receive Date: 20100107
  Receipt Date: 20100104
  Transmission Date: 20100710
  Serious: Yes (Other)
  Sender: FDA-Public Use
  Company Number: GB-MERCK-1001GBR00005

PATIENT
  Age: 55 Year
  Sex: Male
  Weight: 86 kg

DRUGS (1)
  1. ZOCOR [Suspect]
     Route: 065
     Dates: start: 20090527, end: 20090608

REACTIONS (4)
  - ARTHRALGIA [None]
  - FATIGUE [None]
  - LISTLESS [None]
  - PAIN [None]
